FAERS Safety Report 8938481 (Version 1)
Quarter: 2012Q4

REPORT INFORMATION
  Report Type: 
  Country: US (occurrence: US)
  Receive Date: 20121201
  Receipt Date: 20121201
  Transmission Date: 20130627
  Serious: Yes (Hospitalization)
  Sender: FDA-Public Use
  Company Number: US-US-EMD SERONO, INC.-232906K09USA

PATIENT
  Sex: Male
  Weight: 82 kg

DRUGS (4)
  1. REBIF [Suspect]
     Indication: MULTIPLE SCLEROSIS
     Dates: start: 200712
  2. REBIF [Suspect]
     Route: 058
     Dates: start: 20080722
  3. REBIF [Suspect]
     Dates: start: 201211
  4. SOLU-MEDROL [Suspect]
     Indication: MULTIPLE SCLEROSIS
     Route: 042

REACTIONS (1)
  - Osteonecrosis [Recovering/Resolving]
